FAERS Safety Report 4379074-2 (Version None)
Quarter: 2004Q2

REPORT INFORMATION
  Report Type: 
  Country: None (occurrence: None)
  Receive Date: 20040610
  Receipt Date: 20040601
  Transmission Date: 20050107
  Serious: Yes (Other)
  Sender: FDA-Public Use
  Company Number: CA-SHR-04-021345

PATIENT
  Age: 37 Year
  Sex: Female
  Weight: 46.7 kg

DRUGS (1)
  1. MIRENA [Suspect]
     Indication: MENORRHAGIA
     Dosage: 20 UG/DAY, CONT, INTRA-UTERINE
     Route: 015
     Dates: start: 20040121, end: 20040121

REACTIONS (9)
  - CONTUSION [None]
  - CONVULSION [None]
  - DEAFNESS [None]
  - FALL [None]
  - IMPAIRED WORK ABILITY [None]
  - LOSS OF LIBIDO [None]
  - MENTAL DISORDER [None]
  - PANIC ATTACK [None]
  - SYNCOPE VASOVAGAL [None]
